FAERS Safety Report 4331704-7 (Version None)
Quarter: 2004Q2

REPORT INFORMATION
  Report Type: 
  Country: None (occurrence: None)
  Receive Date: 20040405
  Receipt Date: 20030320
  Transmission Date: 20050107
  Serious: No
  Sender: FDA-Public Use
  Company Number: US-GLAXOSMITHKLINE-A0401505A

PATIENT
  Age: 42 Year
  Sex: Female

DRUGS (2)
  1. FLOVENT [Suspect]
     Indication: LARYNGOSPASM
     Route: 055
     Dates: start: 20010301
  2. ZOLOFT [Concomitant]

REACTIONS (2)
  - PAIN [None]
  - PSYCHOMOTOR HYPERACTIVITY [None]
